FAERS Safety Report 9402387 (Version 2)
Quarter: 2013Q3

REPORT INFORMATION
  Report Type: Spontaneous
  Country: US (occurrence: US)
  Receive Date: 20130716
  Receipt Date: 20130809
  Transmission Date: 20140515
  Serious: Yes (Other)
  Sender: FDA-Public Use
  Company Number: US-PFIZER INC-2013204550

PATIENT
  Age: 50 Year
  Sex: Female
  Weight: 87.08 kg

DRUGS (5)
  1. EFFEXOR XR [Suspect]
     Indication: DEPRESSION
     Dosage: 75 MG, 1X/DAY
     Route: 048
     Dates: start: 201202
  2. XANAX [Concomitant]
     Indication: ANXIETY
     Dosage: 0.5 MG, 3X/DAY
  3. HYDROCHLOROTHIAZIDE [Concomitant]
     Dosage: 25 MG, 1X/DAY
     Route: 048
  4. TYLENOL [Concomitant]
     Indication: HEADACHE
     Dosage: UNK
  5. TYLENOL [Concomitant]
     Indication: MIGRAINE

REACTIONS (7)
  - Angina pectoris [Unknown]
  - Dyspnoea [Unknown]
  - Hypertension [Unknown]
  - Choking sensation [Unknown]
  - Pain in extremity [Unknown]
  - Headache [Unknown]
  - Somnolence [Unknown]
